FAERS Safety Report 9888814 (Version 3)
Quarter: 2014Q2

REPORT INFORMATION
  Report Type: Spontaneous
  Country: IL (occurrence: IL)
  Receive Date: 20140211
  Receipt Date: 20140402
  Transmission Date: 20141212
  Serious: Yes (Death, Hospitalization)
  Sender: FDA-Public Use
  Company Number: IL-BAXTER-2014BAX005623

PATIENT
  Age: 6 Month
  Sex: Male
  Weight: 5.26 kg

DRUGS (11)
  1. DEXTROSE 50% USP [Suspect]
     Indication: PARENTERAL NUTRITION
     Route: 042
  2. PRIM?NE 10% [Suspect]
     Indication: PARENTERAL NUTRITION
     Route: 042
  3. STERILE WATER FOR INJECTION USP [Suspect]
     Indication: PARENTERAL NUTRITION
     Route: 042
  4. CALCIUM GLUCONATE [Suspect]
     Indication: PARENTERAL NUTRITION
     Route: 042
  5. POTASSIUM CHLORIDE [Suspect]
     Indication: PARENTERAL NUTRITION
     Dosage: 2MEQ/ML
     Route: 042
  6. MAGNESIUM SULFATE [Suspect]
     Indication: PARENTERAL NUTRITION
     Route: 042
  7. SODIUM ACETATE [Suspect]
     Indication: PARENTERAL NUTRITION
     Dosage: 2 MMOL/ML
     Route: 042
  8. SODIUM CHLORIDE [Suspect]
     Indication: PARENTERAL NUTRITION
     Route: 042
  9. SODIUM GLYCEROPHOSPHATE [Suspect]
     Indication: PARENTERAL NUTRITION
     Route: 042
  10. PEDITRACE [Suspect]
     Indication: PARENTERAL NUTRITION
     Route: 042
  11. SOLUVIT N [Suspect]
     Indication: PARENTERAL NUTRITION
     Route: 042

REACTIONS (2)
  - Respiratory failure [Fatal]
  - Protein total increased [Unknown]
